FAERS Safety Report 16347013 (Version 7)
Quarter: 2021Q3

REPORT INFORMATION
  Report Type: Spontaneous
  Country: DE (occurrence: DE)
  Receive Date: 20190523
  Receipt Date: 20210820
  Transmission Date: 20211014
  Serious: Yes (Life-Threatening, Hospitalization, Disabling, Other)
  Sender: FDA-Public Use
  Company Number: DE-AUROBINDO-AUR-APL-2019-028641

PATIENT
  Age: 66 Year
  Sex: Female
  Weight: 72 kg

DRUGS (5)
  1. OCTENIDERM [Suspect]
     Active Substance: ISOPROPYL ALCOHOL\OCTENIDINE HYDROCHLORIDE\PROPYL ALCOHOL
     Indication: INFECTION PROPHYLAXIS
     Dosage: 4?FOLD PREPUNCTIONAL WIPE DISINFECTION AND SUBSEQUENT DRYING
     Route: 003
     Dates: start: 20190116, end: 20190116
  2. BUCAIN 5MG/ML SOLUTION FOR INJECTION [Suspect]
     Active Substance: BUPIVACAINE HYDROCHLORIDE
     Indication: SPINAL ANAESTHESIA
     Dosage: 12.5 MILLIGRAM, TOTAL
     Route: 037
     Dates: start: 20190116, end: 20190116
  3. OCTENIDERM [Suspect]
     Active Substance: ISOPROPYL ALCOHOL\OCTENIDINE HYDROCHLORIDE\PROPYL ALCOHOL
     Dosage: 1 DOSAGE FORM, TOTAL, 1 DF DOSAGE FORM EVERY TOTAL
     Route: 062
     Dates: start: 20190116, end: 20190116
  4. SUFENTANIL HAMELN [Concomitant]
     Active Substance: SUFENTANIL CITRATE
     Indication: SPINAL ANAESTHESIA
     Dosage: 5 MICROGRAM, EVERY TOTAL
     Route: 037
     Dates: start: 20190116, end: 20190116
  5. LIDOCAINE. [Concomitant]
     Active Substance: LIDOCAINE
     Indication: LOCAL ANAESTHESIA
     Dosage: 2 MILLILITER
     Route: 065
     Dates: start: 20190116

REACTIONS (18)
  - Arachnoiditis [Recovered/Resolved with Sequelae]
  - Mobility decreased [Unknown]
  - Disturbance in attention [Recovering/Resolving]
  - Nausea [Unknown]
  - Paraplegia [Unknown]
  - Hypoaesthesia [Unknown]
  - Cerebrospinal fluid retention [Unknown]
  - Headache [Recovered/Resolved]
  - Disorientation [Unknown]
  - Urinary incontinence [Unknown]
  - Illness [Recovered/Resolved]
  - Bladder discomfort [Unknown]
  - Sensory loss [Unknown]
  - Abdominal discomfort [Unknown]
  - Pleocytosis [Not Recovered/Not Resolved]
  - Radiculopathy [Not Recovered/Not Resolved]
  - Paraparesis [Not Recovered/Not Resolved]
  - Anal incontinence [Unknown]

NARRATIVE: CASE EVENT DATE: 2019
